FAERS Safety Report 6627184-9 (Version None)
Quarter: 2010Q1

REPORT INFORMATION
  Report Type: 
  Country: None (occurrence: None)
  Receive Date: 20100311
  Receipt Date: 20091214
  Transmission Date: 20100710
  Serious: No
  Sender: FDA-Public Use
  Company Number: A0834950A

PATIENT
  Age: 40 Year
  Sex: Female

DRUGS (1)
  1. NICOTINE POLACRILEX [Suspect]
     Dates: start: 20091203, end: 20091204

REACTIONS (5)
  - FEELING HOT [None]
  - HEADACHE [None]
  - HYPERSENSITIVITY [None]
  - PRURITUS [None]
  - URTICARIA [None]
